FAERS Safety Report 5223745-2 (Version None)
Quarter: 2007Q1

REPORT INFORMATION
  Report Type: 
  Country: None (occurrence: None)
  Receive Date: 20070130
  Receipt Date: 20070124
  Transmission Date: 20070707
  Serious: Yes (Other)
  Sender: FDA-Public Use
  Company Number: 2007UW01486

PATIENT
  Age: 63 Year
  Sex: Female
  Weight: 56.7 kg

DRUGS (2)
  1. ARIMIDEX [Suspect]
     Indication: BREAST CANCER
     Route: 048
     Dates: start: 20051101
  2. VITAMIN CAP [Concomitant]

REACTIONS (5)
  - ARTHRALGIA [None]
  - CATARACT [None]
  - DRY EYE [None]
  - MYALGIA [None]
  - VISUAL DISTURBANCE [None]
